FAERS Safety Report 10254392 (Version 1)
Quarter: 2014Q2

REPORT INFORMATION
  Report Type: Spontaneous
  Country: US (occurrence: US)
  Receive Date: 20140624
  Receipt Date: 20140624
  Transmission Date: 20141212
  Serious: No
  Sender: FDA-Public Use
  Company Number: US-ASTRAZENECA-2014SE41187

PATIENT
  Age: 73 Year
  Sex: Female

DRUGS (4)
  1. NEXIUM [Suspect]
     Route: 048
  2. NEXIUM [Suspect]
     Dosage: 4 TIMES A WEEK
     Route: 048
  3. NEXIUM [Suspect]
     Dosage: FIVE TIMES A WEEK
     Route: 048
  4. NEXIUM [Suspect]
     Route: 048

REACTIONS (2)
  - Abdominal pain upper [Unknown]
  - Intentional product misuse [Unknown]
